FAERS Safety Report 18337521 (Version 1)
Quarter: 2020Q4

REPORT INFORMATION
  Report Type: Other
  Country: IT (occurrence: IT)
  Receive Date: 20201002
  Receipt Date: 20201002
  Transmission Date: 20210113
  Serious: Yes (Hospitalization)
  Sender: FDA-Public Use
  Company Number: IT-ROCHE-2688543

PATIENT
  Age: 54 Year
  Sex: Male

DRUGS (3)
  1. CYCLOPHOSPHAMIDE. [Suspect]
     Active Substance: CYCLOPHOSPHAMIDE
     Indication: NON-HODGKIN^S LYMPHOMA
     Dosage: UNKNOWN 6 CYCLES, CYCLICAL
     Route: 065
  2. FLUDARABINE [Suspect]
     Active Substance: FLUDARABINE PHOSPHATE
     Indication: NON-HODGKIN^S LYMPHOMA
     Dosage: UNKNOWN 6 CYCLES, CYCLICAL?DATE OF MOST RECENT DOSE PRIOR TO THE EVENTS ONSET: /NOV/2008
     Route: 065
     Dates: start: 200806
  3. RITUXIMAB. [Suspect]
     Active Substance: RITUXIMAB
     Indication: NON-HODGKIN^S LYMPHOMA
     Dosage: UNKNOWN 6 CYCLES, CYCLICAL
     Route: 065

REACTIONS (3)
  - Cytopenia [Recovered/Resolved]
  - Dysplasia [Recovered/Resolved]
  - Myelodysplastic syndrome [Unknown]

NARRATIVE: CASE EVENT DATE: 201002
